FAERS Safety Report 5675433-6 (Version None)
Quarter: 2008Q2

REPORT INFORMATION
  Report Type: 
  Country: None (occurrence: None)
  Receive Date: 20080307
  Receipt Date: 20070129
  Transmission Date: 20081010
  Serious: Yes (Other)
  Sender: FDA-Public Use
  Company Number: US200701005955

PATIENT
  Age: 40 Year
  Sex: Male
  Weight: 76.2 kg

DRUGS (5)
  1. GEMZAR [Suspect]
     Indication: MALIGNANT NEOPLASM PROGRESSION
     Dates: start: 20060101, end: 20060101
  2. DOCETAXEL [Concomitant]
  3. OXYCONTIN [Concomitant]
  4. TYLENOL /USA/ (PARACETAMOL) [Concomitant]
  5. AMBIEN [Concomitant]

REACTIONS (3)
  - DISEASE PROGRESSION [None]
  - FATIGUE [None]
  - PYREXIA [None]
